FAERS Safety Report 7170715-3 (Version None)
Quarter: 2010Q4

REPORT INFORMATION
  Report Type: 
  Country: None (occurrence: None)
  Receive Date: 20101217
  Receipt Date: 20101217
  Transmission Date: 20110411
  Serious: Yes (Hospitalization, Other)
  Sender: FDA-Public Use
  Company Number: NZ-PFIZER INC-2010173953

PATIENT
  Sex: Female

DRUGS (4)
  1. CHAMPIX [Suspect]
     Dosage: UNK
     Dates: end: 20101213
  2. CITALOPRAM [Concomitant]
     Dosage: 30 MG, IN THE MORNING
  3. DOXEPIN [Concomitant]
     Dosage: 20 - 30 MG, AT NIGHT
  4. LEVOTHYROXINE SODIUM [Concomitant]
     Dosage: 100 UG, 1X/DAY

REACTIONS (4)
  - ANXIETY [None]
  - CHEST PAIN [None]
  - LOWER RESPIRATORY TRACT INFECTION [None]
  - OROPHARYNGEAL PAIN [None]
